FAERS Safety Report 5911837-1 (Version None)
Quarter: 2008Q4

REPORT INFORMATION
  Report Type: 
  Country: None (occurrence: None)
  Receive Date: 20081006
  Receipt Date: 20080822
  Transmission Date: 20090506
  Serious: Yes (Other)
  Sender: FDA-Public Use
  Company Number: 2008AL010839

PATIENT
  Age: 51 Year
  Sex: Male

DRUGS (1)
  1. ACETAMINOPHEN AND CODEINE PHOSPHATE [Suspect]
     Indication: MUSCLE STRAIN
     Dosage: 2 DF; QID; PO
     Route: 048
     Dates: start: 20080601, end: 20080601

REACTIONS (3)
  - HEPATITIS [None]
  - PAIN IN EXTREMITY [None]
  - THROMBOCYTHAEMIA [None]
